FAERS Safety Report 4360641-7 (Version None)
Quarter: 2004Q2

REPORT INFORMATION
  Report Type: 
  Country: None (occurrence: None)
  Receive Date: 20040519
  Receipt Date: 20040519
  Transmission Date: 20050107
  Serious: Yes (Other)
  Sender: FDA-Public Use
  Company Number: None

PATIENT
  Age: 49 Year
  Sex: Female
  Weight: 68.9467 kg

DRUGS (1)
  1. CRESTOR [Suspect]
     Dosage: 1 DAY
     Dates: start: 20040201, end: 20040215

REACTIONS (4)
  - ABASIA [None]
  - ASTHENIA [None]
  - CHROMATURIA [None]
  - MYALGIA [None]
